FAERS Safety Report 7088478-9 (Version None)
Quarter: 2010Q4

REPORT INFORMATION
  Report Type: 
  Country: None (occurrence: None)
  Receive Date: 20101108
  Receipt Date: 20101101
  Transmission Date: 20110411
  Serious: Yes (Other)
  Sender: FDA-Public Use
  Company Number: BR-ROCHE-738151

PATIENT
  Age: 42 Year
  Sex: Female

DRUGS (5)
  1. RIBAVIRIN [Suspect]
     Indication: HEPATITIS C
     Dosage: 12 MONTHS OF TREATMENT.
     Route: 065
     Dates: start: 20020101, end: 20020101
  2. RIBAVIRIN [Suspect]
     Dosage: FOR 48 WEEKS
     Route: 065
     Dates: start: 20040501, end: 20050401
  3. RITUXIMAB [Suspect]
     Indication: HEPATITIS C
     Route: 065
     Dates: start: 20070701, end: 20070801
  4. INTERFERON [Suspect]
     Indication: HEPATITIS C
     Dosage: 12 MONTHS OF TREATMENT
     Route: 065
     Dates: start: 20020101, end: 20020101
  5. PEGINTERFERON ALFA-2B [Suspect]
     Indication: HEPATITIS C
     Route: 065
     Dates: start: 20040501, end: 20050401

REACTIONS (4)
  - BUTTERFLY RASH [None]
  - DRUG INEFFECTIVE [None]
  - PYREXIA [None]
  - SKIN ULCER [None]
